FAERS Safety Report 17540944 (Version 1)
Quarter: 2020Q1

REPORT INFORMATION
  Report Type: Report from Study
  Country: CA (occurrence: CA)
  Receive Date: 20200313
  Receipt Date: 20200313
  Transmission Date: 20200409
  Serious: Yes (Other)
  Sender: FDA-Public Use
  Company Number: CA-NALPROPION PHARMACEUTICALS INC.-2020-009871

PATIENT

DRUGS (3)
  1. CONTRAVE [Suspect]
     Active Substance: BUPROPION HYDROCHLORIDE\NALTREXONE HYDROCHLORIDE
     Dosage: 90/8 MG; APPROXIMATELY 21/FEB/2020 TO APPROXIMATELY 27/FEB/2020
     Route: 048
     Dates: start: 202002, end: 202002
  2. CONTRAVE [Suspect]
     Active Substance: BUPROPION HYDROCHLORIDE\NALTREXONE HYDROCHLORIDE
     Dosage: 90/8 MG; APPROXIMATELY 28/FEB/2020
     Route: 048
     Dates: start: 202002
  3. CONTRAVE [Suspect]
     Active Substance: BUPROPION HYDROCHLORIDE\NALTREXONE HYDROCHLORIDE
     Indication: WEIGHT CONTROL
     Dosage: 90/8 MG; APPROXIMATELY 14/FEB/2020 TO APPROXIMATELY 20/FEB/2020
     Route: 048
     Dates: start: 202002, end: 202002

REACTIONS (5)
  - Haematochezia [Recovering/Resolving]
  - Abdominal discomfort [Unknown]
  - Haemorrhoids [Unknown]
  - Constipation [Recovered/Resolved]
  - Feeling abnormal [Unknown]

NARRATIVE: CASE EVENT DATE: 202002
